FAERS Safety Report 11776404 (Version 1)
Quarter: 2015Q4

REPORT INFORMATION
  Report Type: Other
  Country: RO (occurrence: RO)
  Receive Date: 20151125
  Receipt Date: 20151125
  Transmission Date: 20160304
  Serious: Yes (Other)
  Sender: FDA-Public Use
  Company Number: RO-ACTELION-A-CH2015-127609

PATIENT
  Age: 48 Year
  Sex: Female

DRUGS (2)
  1. TRACLEER [Suspect]
     Active Substance: BOSENTAN
     Dosage: 62.5 MG, BID
     Route: 048
  2. TRACLEER [Suspect]
     Active Substance: BOSENTAN
     Indication: PULMONARY ARTERIAL HYPERTENSION
     Dosage: 125 MG, BID
     Route: 048

REACTIONS (12)
  - Brain natriuretic peptide increased [Unknown]
  - Alanine aminotransferase increased [Unknown]
  - QRS axis abnormal [Unknown]
  - Dyspnoea [Recovered/Resolved]
  - Hypochromic anaemia [Unknown]
  - Pulmonary arterial pressure abnormal [Unknown]
  - Pulmonary veno-occlusive disease [Unknown]
  - Bundle branch block right [Unknown]
  - Walking distance test abnormal [Recovered/Resolved]
  - Exercise tolerance decreased [Recovered/Resolved]
  - Dyspnoea exertional [Recovered/Resolved]
  - Acute pulmonary oedema [Recovered/Resolved]
